FAERS Safety Report 8021866-2 (Version None)
Quarter: 2012Q1

REPORT INFORMATION
  Report Type: 
  Country: None (occurrence: None)
  Receive Date: 20120104
  Receipt Date: 20111221
  Transmission Date: 20120608
  Serious: Yes (Hospitalization, Other)
  Sender: FDA-Public Use
  Company Number: FR-CELGENEUS-056-21880-10102555

PATIENT
  Sex: Male

DRUGS (2)
  1. REVLIMID [Suspect]
     Indication: MULTIPLE MYELOMA
     Route: 048
     Dates: start: 20070305, end: 20090213
  2. VALACYCLOVIR HYDROCHLORIDE [Concomitant]
     Route: 065
     Dates: start: 20060126, end: 20090213

REACTIONS (1)
  - COLON CANCER [None]
